FAERS Safety Report 20155784 (Version 2)
Quarter: 2022Q2

REPORT INFORMATION
  Report Type: Spontaneous
  Country: US (occurrence: US)
  Receive Date: 20211207
  Receipt Date: 20220517
  Transmission Date: 20220721
  Serious: No
  Sender: FDA-Public Use
  Company Number: US-PFIZER INC-2021128871

PATIENT
  Age: 47 Year
  Sex: Female

DRUGS (3)
  1. XELJANZ XR [Suspect]
     Active Substance: TOFACITINIB CITRATE
     Indication: Rheumatoid arthritis
     Dosage: 11 MG, DAILY
     Route: 048
     Dates: start: 2019
  2. XELJANZ XR [Suspect]
     Active Substance: TOFACITINIB CITRATE
     Dosage: 11 MG, 1X/DAY
     Route: 048
     Dates: start: 2019
  3. XELJANZ XR [Suspect]
     Active Substance: TOFACITINIB CITRATE
     Dosage: 11 MG, 1X/DAY (ONCE A DAY)
     Route: 048
     Dates: start: 20191029

REACTIONS (6)
  - Intentional dose omission [Unknown]
  - Product dose omission issue [Unknown]
  - Pain [Unknown]
  - Intentional dose omission [Unknown]
  - Malaise [Unknown]
  - Malaise [Unknown]

NARRATIVE: CASE EVENT DATE: 20200101
